FAERS Safety Report 24170978 (Version 1)
Quarter: 2024Q3

REPORT INFORMATION
  Report Type: Spontaneous
  Country: US (occurrence: None)
  Receive Date: 20240805
  Receipt Date: 20240805
  Transmission Date: 20241016
  Serious: Yes (Hospitalization)
  Sender: Public
  Company Number: None

PATIENT
  Sex: Male
  Weight: 55.5 kg

DRUGS (1)
  1. CISPLATIN [Suspect]
     Active Substance: CISPLATIN

REACTIONS (8)
  - Pyrexia [None]
  - Chills [None]
  - Sputum discoloured [None]
  - Hypotension [None]
  - Dehydration [None]
  - Bronchiolitis [None]
  - Pneumonitis aspiration [None]
  - Febrile neutropenia [None]

NARRATIVE: CASE EVENT DATE: 20240708
